FAERS Safety Report 7554138-0 (Version None)
Quarter: 2011Q2

REPORT INFORMATION
  Report Type: 
  Country: None (occurrence: None)
  Receive Date: 20110617
  Receipt Date: 20110602
  Transmission Date: 20111010
  Serious: Yes (Hospitalization, Other)
  Sender: FDA-Public Use
  Company Number: PT-JNJFOC-20090201529

PATIENT
  Sex: Female

DRUGS (11)
  1. REMICADE [Suspect]
     Route: 042
     Dates: start: 20071001, end: 20080901
  2. REMICADE [Suspect]
     Indication: CROHN'S DISEASE
     Route: 042
     Dates: start: 20060101
  3. REMICADE [Suspect]
     Route: 042
     Dates: start: 20000501, end: 20010101
  4. REMICADE [Suspect]
     Dosage: ON DEMAND
     Route: 042
     Dates: start: 19991201
  5. ADALIMUMAB [Concomitant]
     Dosage: WEEK 0
     Dates: start: 20071001
  6. ADALIMUMAB [Concomitant]
     Dates: start: 20071001
  7. REMICADE [Suspect]
     Route: 042
     Dates: start: 20040101
  8. PREDNISOLONE [Suspect]
     Indication: CROHN'S DISEASE
     Dates: start: 20080101
  9. PREDNISONE [Concomitant]
     Indication: PREMEDICATION
     Dosage: ON THE 2 DAYS PRIOR TO INFUSION
     Dates: start: 20040101, end: 20080101
  10. REMICADE [Suspect]
     Route: 042
     Dates: start: 20020510, end: 20020524
  11. REMICADE [Suspect]
     Route: 042
     Dates: start: 20080101, end: 20080901

REACTIONS (10)
  - OSTEOPOROSIS [None]
  - DRUG EXPOSURE BEFORE PREGNANCY [None]
  - DRUG INEFFECTIVE [None]
  - CROHN'S DISEASE [None]
  - CATARACT [None]
  - AUTOIMMUNE HEPATITIS [None]
  - SERUM SICKNESS [None]
  - INTERVERTEBRAL DISC PROTRUSION [None]
  - RETINAL DETACHMENT [None]
  - DERMOID CYST [None]
